FAERS Safety Report 15849289 (Version 1)
Quarter: 2019Q1

REPORT INFORMATION
  Report Type: Spontaneous
  Country: BR (occurrence: BR)
  Receive Date: 20190121
  Receipt Date: 20190121
  Transmission Date: 20190417
  Serious: Yes (Other)
  Sender: FDA-Public Use
  Company Number: BR-SA-2019SA011779

PATIENT
  Age: 63 Year
  Sex: Female
  Weight: 77 kg

DRUGS (2)
  1. CLEXANE [Suspect]
     Active Substance: ENOXAPARIN SODIUM
     Dosage: 1 DF
     Dates: start: 20181229, end: 20190112
  2. ARADOIS [Concomitant]
     Active Substance: LOSARTAN POTASSIUM
     Dosage: 2 DF, QD
     Route: 048

REACTIONS (3)
  - Haemorrhage [Not Recovered/Not Resolved]
  - Product use issue [Unknown]
  - Lividity [Not Recovered/Not Resolved]

NARRATIVE: CASE EVENT DATE: 20190113
